FAERS Safety Report 9264943 (Version 2)
Quarter: 2014Q3

REPORT INFORMATION
  Report Type: Spontaneous
  Country: US (occurrence: US)
  Receive Date: 20130501
  Receipt Date: 20140909
  Transmission Date: 20150326
  Serious: Yes (Hospitalization)
  Sender: FDA-Public Use
  Company Number: US-BAYER-2013-052711

PATIENT
  Age: 16 Year
  Sex: Female
  Weight: 47.62 kg

DRUGS (11)
  1. YAZ [Suspect]
     Active Substance: DROSPIRENONE\ETHINYL ESTRADIOL
  2. MULTIVITAMIN AND MINERAL [Concomitant]
  3. YASMIN [Suspect]
     Active Substance: DROSPIRENONE\ETHINYL ESTRADIOL
     Indication: ACNE
  4. GIANVI [Suspect]
     Active Substance: DROSPIRENONE\ETHINYL ESTRADIOL
  5. PROAIR HFA [Concomitant]
     Active Substance: ALBUTEROL SULFATE
     Dosage: UNK
     Dates: start: 20101119
  6. AMITRIPTYLINE HCL [Concomitant]
     Active Substance: AMITRIPTYLINE
     Dosage: 10 MG, UNK
     Dates: start: 20101119
  7. ZYRTEC [Concomitant]
     Active Substance: CETIRIZINE HYDROCHLORIDE
     Dosage: UNK
     Dates: start: 20101203
  8. DOXYCYCLINE. [Concomitant]
     Active Substance: DOXYCYCLINE
     Dosage: 100 MG, UNK
     Dates: start: 20101119
  9. KEFLEX [Concomitant]
     Active Substance: CEPHALEXIN
     Dosage: UNK
     Dates: start: 20101203
  10. CEPHALEXIN. [Concomitant]
     Active Substance: CEPHALEXIN
     Dosage: 500 MG, UNK
     Dates: start: 20100913, end: 20101127
  11. TRETINOIN. [Concomitant]
     Active Substance: TRETINOIN
     Dosage: UNK
     Route: 061
     Dates: start: 20101119

REACTIONS (10)
  - Subclavian vein thrombosis [Recovered/Resolved]
  - Thrombophlebitis superficial [Recovered/Resolved]
  - Impaired work ability [None]
  - Anxiety [None]
  - Injury [None]
  - Discomfort [None]
  - Anhedonia [None]
  - Axillary vein thrombosis [Recovered/Resolved]
  - Pain [None]
  - Emotional distress [None]

NARRATIVE: CASE EVENT DATE: 20101202
